FAERS Safety Report 5926208-1 (Version None)
Quarter: 2008Q4

REPORT INFORMATION
  Report Type: 
  Country: None (occurrence: None)
  Receive Date: 20081017
  Receipt Date: 20081011
  Transmission Date: 20090506
  Serious: Yes (Life-Threatening)
  Sender: FDA-Public Use
  Company Number: ENTC2008-0324

PATIENT
  Age: 64 Year
  Sex: Female

DRUGS (4)
  1. STALEVO 100 [Suspect]
     Indication: PARKINSON'S DISEASE
     Dosage: 600 MG, 4 IN 1 D, ORAL
     Route: 048
  2. REQUIP XL [Suspect]
     Indication: PARKINSON'S DISEASE
     Dosage: 8 MG
     Dates: start: 20080901, end: 20080901
  3. AMANTADINE HCL [Concomitant]
  4. REQUIP [Concomitant]

REACTIONS (6)
  - CHEST DISCOMFORT [None]
  - CHEST PAIN [None]
  - DIZZINESS [None]
  - DRUG INTERACTION [None]
  - MALAISE [None]
  - NAUSEA [None]
